FAERS Safety Report 25881306 (Version 1)
Quarter: 2025Q4

REPORT INFORMATION
  Report Type: Spontaneous
  Country: US (occurrence: US)
  Receive Date: 20251005
  Receipt Date: 20251005
  Transmission Date: 20260119
  Serious: No
  Sender: SANOFI AVENTIS
  Company Number: US-SA-2025SA293229

PATIENT
  Sex: Female
  Weight: 116.36 kg

DRUGS (2)
  1. DUPIXENT [Suspect]
     Active Substance: DUPILUMAB
     Indication: Dermatitis atopic
     Dosage: 300 MG, QOW
     Route: 058
  2. NEMLUVIO [Concomitant]
     Active Substance: NEMOLIZUMAB-ILTO
     Dosage: UNK

REACTIONS (2)
  - Nausea [Unknown]
  - Muscle spasms [Unknown]
